FAERS Safety Report 9096726 (Version 2)
Quarter: 2013Q1

REPORT INFORMATION
  Report Type: Spontaneous
  Country: DE (occurrence: DE)
  Receive Date: 20130211
  Receipt Date: 20130304
  Transmission Date: 20140127
  Serious: Yes (Other)
  Sender: FDA-Public Use
  Company Number: PHHY2013DE011013

PATIENT
  Sex: Male

DRUGS (5)
  1. LEPONEX [Suspect]
     Indication: PARKINSON^S DISEASE
     Dosage: UNK
     Route: 048
  2. ALLOPURINOL [Concomitant]
  3. ASPIRIN [Concomitant]
  4. ESOMEPRAZOLE [Concomitant]
  5. EFFORTIL [Concomitant]
     Dosage: UNK, PRN

REACTIONS (4)
  - Contusion [Recovering/Resolving]
  - Induration [Recovering/Resolving]
  - Erythema [Recovered/Resolved]
  - Nipple pain [Unknown]
